FAERS Safety Report 22352852 (Version 1)
Quarter: 2023Q2

REPORT INFORMATION
  Report Type: Spontaneous
  Country: IR (occurrence: IR)
  Receive Date: 20230523
  Receipt Date: 20230523
  Transmission Date: 20230721
  Serious: Yes (Hospitalization, Other)
  Sender: FDA-Public Use
  Company Number: IR-NOVITIUMPHARMA-2023IRNVP00753

PATIENT
  Age: 25 Year
  Sex: Male

DRUGS (2)
  1. LIDOCAINE HYDROCHLORIDE [Suspect]
     Active Substance: LIDOCAINE HYDROCHLORIDE
     Indication: Anogenital warts
     Dosage: 70G/10G
     Route: 061
  2. BENZOCAINE [Concomitant]
     Active Substance: BENZOCAINE
     Indication: Anogenital warts
     Dosage: 60G/10G
     Route: 061

REACTIONS (3)
  - Haemolysis [Recovered/Resolved]
  - Methaemoglobinaemia [Recovered/Resolved]
  - Overdose [Unknown]
